FAERS Safety Report 14650793 (Version 2)
Quarter: 2018Q2

REPORT INFORMATION
  Report Type: Report from Study
  Country: US (occurrence: US)
  Receive Date: 20180316
  Receipt Date: 20180409
  Transmission Date: 20180711
  Serious: Yes (Death, Hospitalization)
  Sender: FDA-Public Use
  Company Number: US-ACTELION-A-NJ2018-168502

PATIENT
  Age: 63 Year
  Sex: Male

DRUGS (1)
  1. OPSUMIT [Suspect]
     Active Substance: MACITENTAN
     Indication: PULMONARY ARTERIAL HYPERTENSION
     Dosage: UNK
     Route: 048
     Dates: start: 20171215, end: 20180124

REACTIONS (7)
  - Cardiogenic shock [Fatal]
  - Staphylococcal infection [Unknown]
  - Right ventricular failure [Unknown]
  - Rotator cuff syndrome [Recovered/Resolved with Sequelae]
  - Renal failure [Unknown]
  - Pulmonary hypertension [Unknown]
  - Bacterial sepsis [Unknown]

NARRATIVE: CASE EVENT DATE: 20180106
